FAERS Safety Report 25657717 (Version 1)
Quarter: 2025Q3

REPORT INFORMATION
  Report Type: Spontaneous
  Country: US (occurrence: US)
  Receive Date: 20250808
  Receipt Date: 20250808
  Transmission Date: 20251021
  Serious: No
  Sender: RANBAXY
  Company Number: US-MIMS-SUN-2025-USA-53895

PATIENT
  Sex: Male

DRUGS (1)
  1. ODOMZO [Suspect]
     Active Substance: SONIDEGIB
     Indication: Skin neoplasm excision
     Dosage: 200 MILLIGRAM, OD
     Route: 048

REACTIONS (3)
  - Arthritis [Unknown]
  - Decreased appetite [Unknown]
  - Weight decreased [Unknown]
